FAERS Safety Report 5019599-X (Version None)
Quarter: 2006Q2

REPORT INFORMATION
  Report Type: 
  Country: None (occurrence: None)
  Receive Date: 20060530
  Receipt Date: 20060522
  Transmission Date: 20061013
  Serious: Yes (Other)
  Sender: FDA-Public Use
  Company Number: 200612178BCC

PATIENT
  Age: 75 Year
  Sex: Female
  Weight: 58.514 kg

DRUGS (4)
  1. GENUINE BAYER ASPIRIN (ACETYLSALICYLIC ACID) [Suspect]
     Indication: PAIN
     Dosage: ORAL
     Route: 048
  2. LOW DOSE 81 MG BAYER ASPIRIN (ACETYLSALICYLIC ACID) [Suspect]
     Indication: CARDIAC DISORDER
     Dosage: 81 MG, QD, ORAL
     Route: 048
     Dates: start: 19990101
  3. LOW DOSE 81 MG BAYER ASPIRIN (ACETYLSALICYLIC ACID) [Suspect]
     Indication: PROPHYLAXIS
     Dosage: 81 MG, QD, ORAL
     Route: 048
     Dates: start: 19990101
  4. PREVACID [Concomitant]

REACTIONS (4)
  - CARDIAC DISORDER [None]
  - GASTRIC ULCER [None]
  - HYPERTENSION [None]
  - PERICARDIAL CALCIFICATION [None]
